FAERS Safety Report 6721755-7 (Version None)
Quarter: 2010Q2

REPORT INFORMATION
  Report Type: 
  Country: None (occurrence: None)
  Receive Date: 20100512
  Receipt Date: 20100504
  Transmission Date: 20101027
  Serious: Yes (Hospitalization)
  Sender: FDA-Public Use
  Company Number: NL-ROCHE-676912

PATIENT
  Sex: Female

DRUGS (9)
  1. BEVACIZUMAB [Suspect]
     Dosage: LAST DATE OF ADMINISTRATION: 11 DEC 2009.
     Route: 042
     Dates: start: 20091211
  2. BEVACIZUMAB [Suspect]
     Dosage: LAST DATE OF ADMINISTRATION: 15 APRIL 2010.
     Route: 042
  3. TRASTUZUMAB [Suspect]
     Dosage: LAST DATE OF ADMINISTRATION: 10 DEC 2009.
     Route: 042
     Dates: start: 20091210
  4. TRASTUZUMAB [Suspect]
     Dosage: LAST DATE OF ADMINISTRATION: 15 APRIL 2010.
     Route: 042
  5. TAXOL [Suspect]
     Dosage: LAST DATE OF ADMINISTRATION: 11 DEC 2009.
     Route: 042
     Dates: start: 20091211
  6. TAXOL [Suspect]
     Dosage: LAST DATE OF ADMINISTRATION: 15 APRIL 2010.
     Route: 042
  7. TRAMADOL HCL [Concomitant]
  8. METOCLOPRAMIDE HYDROCHLORIDE [Concomitant]
  9. BIPHOSPHONATE [Concomitant]
     Dosage: DRUG REPORTED: BIFOSFONAAT
     Dates: start: 20091210

REACTIONS (2)
  - DEVICE RELATED INFECTION [None]
  - PYREXIA [None]
